FAERS Safety Report 17349598 (Version 5)
Quarter: 2020Q2

REPORT INFORMATION
  Report Type: Report from Study
  Country: US (occurrence: US)
  Receive Date: 20200130
  Receipt Date: 20200515
  Transmission Date: 20200713
  Serious: No
  Sender: FDA-Public Use
  Company Number: NVSC2020US018539

PATIENT
  Sex: Female

DRUGS (3)
  1. BEOVU [Suspect]
     Active Substance: BROLUCIZUMAB-DBLL
     Route: 047
     Dates: start: 20191202
  2. BEOVU [Suspect]
     Active Substance: BROLUCIZUMAB-DBLL
     Route: 050
  3. BEOVU [Suspect]
     Active Substance: BROLUCIZUMAB-DBLL
     Route: 047

REACTIONS (2)
  - Musculoskeletal stiffness [Unknown]
  - Bladder disorder [Unknown]
